FAERS Safety Report 5299927-0 (Version None)
Quarter: 2007Q2

REPORT INFORMATION
  Report Type: 
  Country: None (occurrence: None)
  Receive Date: 20070417
  Receipt Date: 20070405
  Transmission Date: 20071010
  Serious: Yes (Other)
  Sender: FDA-Public Use
  Company Number: NL-PFIZER INC-2007027608

PATIENT
  Age: 35 Year
  Sex: Female

DRUGS (1)
  1. PHENYTOIN [Suspect]

REACTIONS (6)
  - ANTICONVULSANT DRUG LEVEL INCREASED [None]
  - DISORIENTATION [None]
  - HALLUCINATION [None]
  - MYOCLONUS [None]
  - NERVOUS SYSTEM DISORDER [None]
  - SOMNOLENCE [None]
